FAERS Safety Report 6783743-4 (Version None)
Quarter: 2010Q2

REPORT INFORMATION
  Report Type: 
  Country: None (occurrence: None)
  Receive Date: 20100520
  Receipt Date: 20090618
  Transmission Date: 20101027
  Serious: Yes (Other)
  Sender: FDA-Public Use
  Company Number: 2008057628

PATIENT
  Age: 56 Year
  Sex: Female
  Weight: 104 kg

DRUGS (5)
  1. PROVERA [Suspect]
     Indication: HORMONE REPLACEMENT THERAPY
     Dosage: 2.5 MG, ORAL
     Route: 048
     Dates: start: 19870101, end: 19930101
  2. PREMPRO [Suspect]
     Indication: HORMONE REPLACEMENT THERAPY
  3. ESTRACE [Suspect]
     Indication: HORMONE REPLACEMENT THERAPY
     Dosage: 1 MG ; 1 MG
     Dates: start: 19890101, end: 19890101
  4. ESTRACE [Suspect]
     Indication: HORMONE REPLACEMENT THERAPY
     Dosage: 1 MG ; 1 MG
     Dates: start: 19900101, end: 19980101
  5. LEVOXYL [Concomitant]

REACTIONS (1)
  - BREAST CANCER [None]
